FAERS Safety Report 8502305 (Version 4)
Quarter: 2012Q4

REPORT INFORMATION
  Report Type: Report from Study
  Country: US (occurrence: US)
  Receive Date: 20120410
  Receipt Date: 20121207
  Transmission Date: 20130627
  Serious: Yes (Disabling, Other)
  Sender: FDA-Public Use
  Company Number: US-ROCHE-1054966

PATIENT
  Age: 26 Year
  Sex: Female
  Weight: 101.7 kg

DRUGS (4)
  1. VEMURAFENIB [Suspect]
     Indication: MALIGNANT MELANOMA
     Dosage: 720 mg in morning and 960 mg at night
     Route: 048
  2. VEMURAFENIB [Suspect]
     Dosage: 3
     Route: 048
     Dates: start: 20120227, end: 20120308
  3. VEMURAFENIB [Suspect]
     Route: 048
     Dates: start: 20120402
  4. VEMURAFENIB [Suspect]
     Route: 048
     Dates: start: 20120402

REACTIONS (11)
  - Oropharyngeal pain [Recovering/Resolving]
  - Rash [Recovered/Resolved]
  - Photophobia [Unknown]
  - Rash erythematous [Unknown]
  - Nausea [Unknown]
  - Myalgia [Unknown]
  - Arthralgia [Unknown]
  - Pruritus [Unknown]
  - Alopecia [Unknown]
  - Dyspnoea [Unknown]
  - Fatigue [Unknown]
